FAERS Safety Report 9443162 (Version 2)
Quarter: 2013Q3

REPORT INFORMATION
  Report Type: Spontaneous
  Country: US (occurrence: US)
  Receive Date: 20130806
  Receipt Date: 20130812
  Transmission Date: 20140515
  Serious: Yes (Other)
  Sender: FDA-Public Use
  Company Number: US-COVIDIEN/TYCO HEALTHCARE/MALLINCKRODT-T201303908

PATIENT
  Age: 61 Year
  Sex: Male

DRUGS (6)
  1. TEMAZEPAM [Suspect]
     Indication: SLEEP DISORDER
     Dosage: 15 MG, Q HS
  2. MORPHINE [Suspect]
     Indication: PRODUCT USED FOR UNKNOWN INDICATION
     Dosage: UNK
  3. OXYCONTIN [Suspect]
     Dosage: UNK
  4. ALPRAZOLAM [Suspect]
     Dosage: UNK
  5. ANTIHYPERTENSIVES [Concomitant]
     Indication: HYPERTENSION
  6. STATIN                             /00084401/ [Concomitant]
     Indication: BLOOD CHOLESTEROL INCREASED
     Dosage: UNK

REACTIONS (1)
  - Drug dependence [Unknown]
